FAERS Safety Report 10924273 (Version 1)
Quarter: 2015Q1

REPORT INFORMATION
  Report Type: Spontaneous
  Country: US (occurrence: None)
  Receive Date: 20150129
  Receipt Date: 20150129
  Transmission Date: 20150721
  Serious: Yes (Hospitalization)
  Sender: FDA-Public Use
  Company Number: 107013U

PATIENT
  Sex: Female

DRUGS (5)
  1. MELOXICAM (MELOXICAM) [Concomitant]
     Active Substance: MELOXICAM
  2. KEPPRA [Suspect]
     Active Substance: LEVETIRACETAM
     Indication: EPILEPSY
     Route: 048
     Dates: start: 201312
  3. TRAMADOL (TRAMADOL HYDROCHLORIDE) [Concomitant]
     Active Substance: TRAMADOL HYDROCHLORIDE
  4. RISPERDAL [Concomitant]
     Active Substance: RISPERIDONE
  5. ALBUTEROL (SALBUTAMOL SULFATE) [Concomitant]

REACTIONS (1)
  - Generalised tonic-clonic seizure [None]

NARRATIVE: CASE EVENT DATE: 2013
